FAERS Safety Report 12253182 (Version 1)
Quarter: 2016Q2

REPORT INFORMATION
  Report Type: Spontaneous
  Country: US (occurrence: US)
  Receive Date: 20160411
  Receipt Date: 20160411
  Transmission Date: 20160815
  Serious: No
  Sender: FDA-Public Use
  Company Number: US-GLAXOSMITHKLINE-US2016042508

PATIENT
  Age: 78 Year
  Sex: Male

DRUGS (7)
  1. CALCITRIOL. [Concomitant]
     Active Substance: CALCITRIOL
  2. DIAZEPAM. [Concomitant]
     Active Substance: DIAZEPAM
  3. METOPROLOL. [Concomitant]
     Active Substance: METOPROLOL
  4. SIMVASTATIN. [Concomitant]
     Active Substance: SIMVASTATIN
  5. VENTOLIN HFA [Concomitant]
     Active Substance: ALBUTEROL SULFATE
  6. INCRUSE ELLIPTA [Suspect]
     Active Substance: UMECLIDINIUM BROMIDE
     Indication: CHRONIC OBSTRUCTIVE PULMONARY DISEASE
     Dosage: 1 PUFF(S), QD
     Route: 055
     Dates: start: 20160120
  7. ASPIRIN. [Concomitant]
     Active Substance: ASPIRIN

REACTIONS (4)
  - Vision blurred [Not Recovered/Not Resolved]
  - Abdominal pain upper [Recovered/Resolved]
  - Extra dose administered [Unknown]
  - Incorrect route of drug administration [Recovered/Resolved]

NARRATIVE: CASE EVENT DATE: 20160120
